FAERS Safety Report 9065374 (Version 1)
Quarter: 2013Q1

REPORT INFORMATION
  Report Type: Spontaneous
  Country: US (occurrence: US)
  Receive Date: 20130130
  Receipt Date: 20130130
  Transmission Date: 20140127
  Serious: Yes (Hospitalization)
  Sender: FDA-Public Use
  Company Number: CHPA2013US001559

PATIENT
  Age: 72 Year
  Sex: Female

DRUGS (3)
  1. THERAFLU FLU [Suspect]
     Dosage: UNK, UNK
     Route: 048
  2. QUESTRAN [Concomitant]
     Indication: BLOOD CHOLESTEROL INCREASED
     Dosage: 20 MG, UNK
     Route: 048
  3. ELDERBERRY [Concomitant]
     Indication: NASOPHARYNGITIS
     Dosage: 1 DF, AS NEEDED
     Route: 048

REACTIONS (5)
  - Heart rate increased [Recovered/Resolved]
  - Nasopharyngitis [Unknown]
  - Nasal discomfort [Unknown]
  - Nasal mucosal disorder [Unknown]
  - Nasal oedema [Unknown]
